FAERS Safety Report 9315713 (Version 1)
Quarter: 2013Q2

REPORT INFORMATION
  Report Type: Other
  Country: IT (occurrence: IT)
  Receive Date: 20130529
  Receipt Date: 20130529
  Transmission Date: 20140414
  Serious: Yes (Other)
  Sender: FDA-Public Use
  Company Number: IT-WATSON-2013-09238

PATIENT
  Age: 19 Year
  Sex: Female

DRUGS (5)
  1. SERTRALINE HYDROCHLORIDE (UNKNOWN) [Suspect]
     Indication: DEPRESSION
     Dosage: 150MG TOTAL
     Route: 048
     Dates: start: 20130303, end: 20130303
  2. SERTRALINE HYDROCHLORIDE (UNKNOWN) [Suspect]
     Dosage: 100 MG
     Route: 048
     Dates: start: 20130426
  3. BROMAZEPAM (UNKNOWN) [Suspect]
     Indication: DEPRESSION
     Dosage: 50MG TOTAL
     Route: 048
     Dates: start: 20130303, end: 20130303
  4. DELORAZEPAM [Suspect]
     Indication: DEPRESSION
     Dosage: 4 MG TOTAL
     Route: 048
     Dates: start: 20130303, end: 20130303
  5. DELORAZEPAM [Suspect]
     Dosage: 12 MG
     Route: 048
     Dates: start: 20130426

REACTIONS (5)
  - Drug abuse [Recovering/Resolving]
  - Suicide attempt [Recovering/Resolving]
  - Personality disorder [Recovering/Resolving]
  - Drug abuse [Recovering/Resolving]
  - Overdose [Recovering/Resolving]
